FAERS Safety Report 10206690 (Version 1)
Quarter: 2014Q2

REPORT INFORMATION
  Report Type: Spontaneous
  Country: US (occurrence: None)
  Receive Date: 20140528
  Receipt Date: 20140528
  Transmission Date: 20141212
  Serious: No
  Sender: FDA-Public Use
  Company Number: None

PATIENT
  Age: 61 Year
  Sex: Male

DRUGS (1)
  1. LOSARTAN/HCTZ [Suspect]
     Indication: HYPERTENSION
     Dosage: 1 DOSE QD ORAL
     Route: 048

REACTIONS (5)
  - Dizziness [None]
  - Lethargy [None]
  - Blood pressure decreased [None]
  - Product substitution issue [None]
  - Product quality issue [None]
